FAERS Safety Report 7313809-1 (Version None)
Quarter: 2011Q1

REPORT INFORMATION
  Report Type: 
  Country: None (occurrence: None)
  Receive Date: 20110225
  Receipt Date: 20110217
  Transmission Date: 20110831
  Serious: Yes (Other)
  Sender: FDA-Public Use
  Company Number: FR-PFIZER INC-2011035518

PATIENT
  Age: 84 Year
  Sex: Female

DRUGS (11)
  1. LYRICA [Suspect]
     Dosage: 25 MG, 2X/DAY
     Dates: start: 20110208, end: 20110208
  2. ACETAMINOPHEN [Concomitant]
  3. PROPAFENONE [Concomitant]
     Indication: ARRHYTHMIA
  4. TIMOLOL [Concomitant]
  5. FORLAX [Concomitant]
  6. LYRICA [Suspect]
     Indication: ARTHRALGIA
     Dosage: 25 MG, 1X/DAY
     Dates: start: 20110207, end: 20110207
  7. LYRICA [Suspect]
     Dosage: 25 MG MORNING AND 50 MG EVENING
     Dates: start: 20110209, end: 20110209
  8. VASTAREL [Concomitant]
     Indication: MACULAR DEGENERATION
  9. ATENOLOL [Concomitant]
     Indication: HYPERTENSION
  10. CACIT D3 [Concomitant]
     Indication: OSTEOPOROSIS
  11. LYRICA [Suspect]
     Dosage: 25 MG, 1X/DAY
     Dates: start: 20110210, end: 20110210

REACTIONS (1)
  - TRANSIENT ISCHAEMIC ATTACK [None]
